FAERS Safety Report 4974707-1 (Version None)
Quarter: 2006Q1

REPORT INFORMATION
  Report Type: 
  Country: None (occurrence: None)
  Receive Date: 20060216
  Receipt Date: 20051114
  Transmission Date: 20060701
  Serious: Yes (Hospitalization)
  Sender: FDA-Public Use
  Company Number: PHEH2005US12492

PATIENT
  Age: 55 Year
  Sex: Female

DRUGS (2)
  1. GLEEVEC [Suspect]
     Indication: GASTROINTESTINAL STROMAL TUMOUR
     Dosage: 400 MG, QD, ORAL
     Route: 048
     Dates: start: 20010101
  2. CELEBREX [Suspect]
     Dosage: ORAL
     Route: 048
     Dates: start: 20050601, end: 20050801

REACTIONS (2)
  - PERICARDIAL EFFUSION [None]
  - PNEUMONIA [None]
